FAERS Safety Report 4741906-3 (Version None)
Quarter: 2005Q3

REPORT INFORMATION
  Report Type: 
  Country: None (occurrence: None)
  Receive Date: 20050801
  Receipt Date: 20050223
  Transmission Date: 20060218
  Serious: Yes (Hospitalization)
  Sender: FDA-Public Use
  Company Number: 210495

PATIENT
  Age: 49 Year
  Sex: Female

DRUGS (1)
  1. HERCEPTIN [Suspect]
     Dosage: 1/WEEK, INTRAVENOUS
     Route: 042
     Dates: start: 20041112

REACTIONS (2)
  - DYSPNOEA [None]
  - LUNG INFILTRATION [None]
